FAERS Safety Report 7639724-1 (Version None)
Quarter: 2011Q3

REPORT INFORMATION
  Report Type: 
  Country: None (occurrence: None)
  Receive Date: 20110727
  Receipt Date: 20110719
  Transmission Date: 20111222
  Serious: Yes (Hospitalization, Other)
  Sender: FDA-Public Use
  Company Number: CA-ABBOTT-11P-028-0840496-00

PATIENT
  Sex: Female
  Weight: 84.898 kg

DRUGS (6)
  1. ROBAXIN [Concomitant]
     Indication: PAIN
     Route: 048
  2. TYLENOL W/ CODEINE NO. 3 [Concomitant]
     Indication: PAIN
     Route: 048
     Dates: start: 20060101
  3. BIZOPROLOL [Concomitant]
     Indication: PALPITATIONS
     Route: 048
     Dates: start: 20070101
  4. HUMIRA [Suspect]
     Indication: PSORIASIS
     Route: 058
     Dates: start: 20100515, end: 20110602
  5. RANITIDINE [Concomitant]
     Indication: GASTRIC DISORDER
     Route: 048
     Dates: start: 20060101
  6. HUMIRA [Suspect]
     Route: 058
     Dates: start: 20110714

REACTIONS (5)
  - DIZZINESS [None]
  - MIGRAINE [None]
  - INFLAMMATION [None]
  - NEPHROLITHIASIS [None]
  - EAR DISORDER [None]
